FAERS Safety Report 12796523 (Version 3)
Quarter: 2017Q1

REPORT INFORMATION
  Report Type: Spontaneous
  Country: US (occurrence: US)
  Receive Date: 20160929
  Receipt Date: 20170109
  Transmission Date: 20170428
  Serious: Yes (Other)
  Sender: FDA-Public Use
  Company Number: US-BAYER-2016-184653

PATIENT
  Age: 34 Year
  Sex: Female
  Weight: 78.23 kg

DRUGS (2)
  1. MIRENA [Suspect]
     Active Substance: LEVONORGESTREL
     Dosage: 20 MCG/24HR, CONT
     Dates: start: 20131104
  2. MIRENA [Suspect]
     Active Substance: LEVONORGESTREL
     Indication: CONTRACEPTION
     Dosage: 20 MCG/24HR, CONT
     Route: 015
     Dates: start: 20131104

REACTIONS (6)
  - Procedural pain [Recovered/Resolved]
  - Pregnancy with contraceptive device [Recovered/Resolved]
  - Embedded device [Unknown]
  - Drug ineffective [None]
  - Device difficult to use [None]
  - Haemorrhage in pregnancy [Recovered/Resolved]

NARRATIVE: CASE EVENT DATE: 20151202
